FAERS Safety Report 12959920 (Version 1)
Quarter: 2016Q4

REPORT INFORMATION
  Report Type: Spontaneous
  Country: US (occurrence: US)
  Receive Date: 20161121
  Receipt Date: 20161121
  Transmission Date: 20170207
  Serious: No
  Sender: FDA-Public Use
  Company Number: US-TAKEDA-2016TUS020980

PATIENT
  Age: 60 Year
  Sex: Female
  Weight: 64.4 kg

DRUGS (7)
  1. MOBIC [Concomitant]
     Active Substance: MELOXICAM
     Indication: FIBROMYALGIA
     Dosage: 15 MG, UNK
  2. MOBIC [Concomitant]
     Active Substance: MELOXICAM
     Indication: PAIN MANAGEMENT
  3. LISINOPRIL. [Concomitant]
     Active Substance: LISINOPRIL
     Indication: BLOOD PRESSURE ABNORMAL
     Dosage: 40 MG, UNK
     Dates: start: 2011
  4. MOBIC [Concomitant]
     Active Substance: MELOXICAM
     Indication: ARTHRITIS
  5. XANAX [Concomitant]
     Active Substance: ALPRAZOLAM
     Indication: ANXIETY
     Dosage: 1 MG, UNK
  6. TOPROL XL [Concomitant]
     Active Substance: METOPROLOL SUCCINATE
     Indication: BLOOD PRESSURE MEASUREMENT
     Dosage: 100 MG, UNK
     Dates: start: 2013
  7. TRINTELLIX [Suspect]
     Active Substance: VORTIOXETINE HYDROBROMIDE
     Indication: DEPRESSION
     Dosage: 10 MG, QD
     Route: 048
     Dates: start: 20161104

REACTIONS (4)
  - Blood pressure increased [Not Recovered/Not Resolved]
  - Epistaxis [Recovered/Resolved]
  - Erythema [Not Recovered/Not Resolved]
  - Condition aggravated [Not Recovered/Not Resolved]

NARRATIVE: CASE EVENT DATE: 20161114
